FAERS Safety Report 24043237 (Version 1)
Quarter: 2024Q3

REPORT INFORMATION
  Report Type: Spontaneous
  Country: US (occurrence: US)
  Receive Date: 20240702
  Receipt Date: 20240702
  Transmission Date: 20241016
  Serious: Yes (Hospitalization)
  Sender: CSL BEHRING
  Company Number: US-BEH-2024174644

PATIENT
  Age: 7 Year
  Sex: Female

DRUGS (4)
  1. HUMATE-P [Suspect]
     Active Substance: HUMAN COAGULATION FACTOR VIII/VON WILLEBRAND FACTOR COMPLEX
     Indication: Von Willebrand^s disease
     Dosage: 1492 IU, TOT
     Route: 042
     Dates: start: 20240611
  2. HUMATE-P [Suspect]
     Active Substance: HUMAN COAGULATION FACTOR VIII/VON WILLEBRAND FACTOR COMPLEX
     Dosage: UNK
     Route: 042
  3. HUMATE-P [Suspect]
     Active Substance: HUMAN COAGULATION FACTOR VIII/VON WILLEBRAND FACTOR COMPLEX
     Dosage: UNK
     Route: 042
  4. AMINOCAPROIC ACID [Concomitant]
     Active Substance: AMINOCAPROIC ACID

REACTIONS (1)
  - Adenotonsillectomy [Unknown]

NARRATIVE: CASE EVENT DATE: 20240612
